FAERS Safety Report 6276275-3 (Version None)
Quarter: 2009Q3

REPORT INFORMATION
  Report Type: 
  Country: None (occurrence: None)
  Receive Date: 20090722
  Receipt Date: 20090707
  Transmission Date: 20100115
  Serious: Yes (Hospitalization)
  Sender: FDA-Public Use
  Company Number: US-RB-017632-09

PATIENT
  Age: 13 Year
  Sex: Male

DRUGS (5)
  1. MUCINEX [Suspect]
     Route: 048
     Dates: start: 20090619
  2. MUCINEX D [Suspect]
     Dosage: TABLET CRUSHED BEFORE TAKING
     Route: 048
     Dates: start: 20090619
  3. DIMETAPP COLD AND ALLERGY [Concomitant]
  4. ALVESCO [Concomitant]
  5. ZYRTEC [Concomitant]

REACTIONS (2)
  - CONVULSION [None]
  - WRONG TECHNIQUE IN DRUG USAGE PROCESS [None]
